FAERS Safety Report 6519244-8 (Version None)
Quarter: 2009Q4

REPORT INFORMATION
  Report Type: 
  Country: None (occurrence: None)
  Receive Date: 20091228
  Receipt Date: 20091216
  Transmission Date: 20100525
  Serious: Yes (Other)
  Sender: FDA-Public Use
  Company Number: PHHY2009BR56250

PATIENT
  Age: 51 Year
  Sex: Female

DRUGS (1)
  1. DIOVAN AMLO FIX [Suspect]
     Dosage: 1 TABLET DAILY
     Route: 048

REACTIONS (5)
  - APPENDICECTOMY [None]
  - APPENDIX DISORDER [None]
  - BLOOD PRESSURE DECREASED [None]
  - DIZZINESS [None]
  - FEELING ABNORMAL [None]
